FAERS Safety Report 5635821-0 (Version None)
Quarter: 2008Q1

REPORT INFORMATION
  Report Type: 
  Country: None (occurrence: None)
  Receive Date: 20080221
  Receipt Date: 20080207
  Transmission Date: 20080703
  Serious: Yes (Other)
  Sender: FDA-Public Use
  Company Number: 2008S1002048

PATIENT
  Age: 23 Year
  Sex: Male

DRUGS (3)
  1. LAMOTRIGINE [Suspect]
     Indication: EPILEPSY
     Dosage: 150 MG; TWICE A DAY, ORAL
     Route: 048
     Dates: start: 20050901
  2. MIRTAZAPINE [Suspect]
     Indication: DEPRESSION
     Dosage: 15 MG; ORAL
     Route: 048
     Dates: start: 20080102, end: 20080108
  3. TEGRETOL [Suspect]
     Indication: EPILEPSY
     Dosage: 400 MG; TWICE A DAY; ORAL
     Route: 048
     Dates: start: 20050901

REACTIONS (3)
  - CONDITION AGGRAVATED [None]
  - DRUG INTERACTION [None]
  - EPILEPSY [None]
